FAERS Safety Report 4516568-0 (Version None)
Quarter: 2004Q4

REPORT INFORMATION
  Report Type: 
  Country: None (occurrence: None)
  Receive Date: 20041202
  Receipt Date: 20041110
  Transmission Date: 20050328
  Serious: Yes (Other)
  Sender: FDA-Public Use
  Company Number: US-ROCHE-386076

PATIENT
  Sex: Female

DRUGS (2)
  1. PEGASYS [Suspect]
     Indication: HEPATITIS C VIRUS
     Route: 058
  2. COPEGUS [Suspect]
     Indication: HEPATITIS C VIRUS
     Route: 048

REACTIONS (5)
  - ASCITES [None]
  - ENCEPHALOPATHY [None]
  - HEPATIC FUNCTION ABNORMAL [None]
  - INTERNATIONAL NORMALISED RATIO INCREASED [None]
  - PROTHROMBIN TIME PROLONGED [None]
